FAERS Safety Report 7875653-6 (Version None)
Quarter: 2011Q4

REPORT INFORMATION
  Report Type: 
  Country: None (occurrence: None)
  Receive Date: 20111031
  Receipt Date: 20111013
  Transmission Date: 20120403
  Serious: Yes (Other)
  Sender: FDA-Public Use
  Company Number: PHHY2011US91004

PATIENT
  Age: 9 Year
  Sex: Female
  Weight: 46 kg

DRUGS (8)
  1. HYDROCORTISONE [Concomitant]
     Dosage: 2. %, QD
     Route: 061
  2. CYCLOSPORINE [Suspect]
     Dosage: 5 MG/KG PER DAY DIVIDED TWICE DAILY
  3. HYDROCORTISONE [Concomitant]
     Dosage: 5 MG EVERY MORNING AND 2.5 MG EVERY EVENING AND AN EXTRA 25 MG OF HYDROCORTISONE DURING ILLNESS
  4. CYCLOSPORINE [Suspect]
     Indication: DERMATITIS EXFOLIATIVE
     Dosage: 3 MG/KG, DIVIDED TWICE DAILY
     Route: 048
  5. ETANERCEPT [Concomitant]
     Dosage: 0.4 MG/KG, BIW
  6. BETAMETHASONE VALERATE [Concomitant]
     Dosage: 0.1 %, BID
  7. ETANERCEPT [Concomitant]
     Dosage: 25 MG, BIW
  8. ETANERCEPT [Concomitant]
     Dosage: 0.8 MG/KG, BIW
     Route: 058

REACTIONS (6)
  - PSORIASIS [None]
  - MOVEMENT DISORDER [None]
  - MUSCLE CONTRACTURE [None]
  - DRUG INEFFECTIVE [None]
  - DERMATITIS EXFOLIATIVE [None]
  - PAIN OF SKIN [None]
